FAERS Safety Report 5954423-X (Version None)
Quarter: 2008Q4

REPORT INFORMATION
  Report Type: 
  Country: None (occurrence: None)
  Receive Date: 20081117
  Receipt Date: 20080115
  Transmission Date: 20090506
  Serious: No
  Sender: FDA-Public Use
  Company Number: US-AMGEN-KDL257354

PATIENT
  Sex: Female

DRUGS (4)
  1. ENBREL [Suspect]
     Indication: RHEUMATOID ARTHRITIS
     Dates: start: 20030101
  2. METHOTREXATE [Concomitant]
     Dates: start: 20050607
  3. PREDNISONE TAB [Concomitant]
     Dates: start: 20071201
  4. IBUPROFEN TABLETS [Concomitant]

REACTIONS (1)
  - HEADACHE [None]
